FAERS Safety Report 13058828 (Version 1)
Quarter: 2016Q4

REPORT INFORMATION
  Report Type: Spontaneous
  Country: US (occurrence: US)
  Receive Date: 20161223
  Receipt Date: 20161223
  Transmission Date: 20170207
  Serious: No
  Sender: FDA-Public Use
  Company Number: US-BRISTOL-MYERS SQUIBB COMPANY-BMS-2016-105802

PATIENT
  Age: 63 Year
  Sex: Female
  Weight: 68 kg

DRUGS (1)
  1. EMPLICITI [Suspect]
     Active Substance: ELOTUZUMAB
     Indication: PLASMA CELL MYELOMA
     Route: 042
     Dates: start: 20161122

REACTIONS (4)
  - Proctalgia [Unknown]
  - Urethral pain [Unknown]
  - Vulvovaginal pain [Unknown]
  - Discomfort [Unknown]

NARRATIVE: CASE EVENT DATE: 20161122
